FAERS Safety Report 8066657-1 (Version None)
Quarter: 2012Q1

REPORT INFORMATION
  Report Type: 
  Country: None (occurrence: None)
  Receive Date: 20120124
  Receipt Date: 20120120
  Transmission Date: 20120608
  Serious: Yes (Death)
  Sender: FDA-Public Use
  Company Number: PHEH2012US001931

PATIENT
  Sex: Male

DRUGS (2)
  1. NEORAL [Suspect]
     Indication: HEART TRANSPLANT
     Dosage: 25 MG, BID, 3 CAPSULES
     Route: 048
     Dates: start: 20050101, end: 20110101
  2. MYCOPHENOLATE MOFETIL (CELLCEPT) [Concomitant]

REACTIONS (1)
  - DEATH [None]
